FAERS Safety Report 4434039-7 (Version None)
Quarter: 2004Q3

REPORT INFORMATION
  Report Type: 
  Country: None (occurrence: None)
  Receive Date: 20040825
  Receipt Date: 20040809
  Transmission Date: 20050211
  Serious: Yes (Death, Hospitalization)
  Sender: FDA-Public Use
  Company Number: FR_040804593

PATIENT
  Age: 79 Year
  Sex: Male
  Weight: 103 kg

DRUGS (2)
  1. XIGRIS [Suspect]
     Indication: SEPTIC SHOCK
     Dates: start: 20040329, end: 20040331
  2. HEPARIN [Concomitant]

REACTIONS (7)
  - HAEMOGLOBIN DECREASED [None]
  - HAEMOTHORAX [None]
  - PERIPHERAL ISCHAEMIA [None]
  - PLEURAL EFFUSION [None]
  - PULMONARY THROMBOSIS [None]
  - RALES [None]
  - SHOCK [None]
